FAERS Safety Report 17215182 (Version 1)
Quarter: 2019Q4

REPORT INFORMATION
  Report Type: Spontaneous
  Country: US (occurrence: US)
  Receive Date: 20191206
  Receipt Date: 20191206
  Transmission Date: 20200122
  Serious: No
  Sender: FDA-Public Use
  Company Number: None

PATIENT

DRUGS (3)
  1. PANTOPRAZOLE SODIUM. [Suspect]
     Active Substance: PANTOPRAZOLE SODIUM
     Dosage: ?          OTHER STRENGTH:40 MG PER VIAL;?
     Route: 058
  2. ETOMIDATE. [Suspect]
     Active Substance: ETOMIDATE
     Route: 042
  3. AZITHROMYCIN ANHYDROUS. [Suspect]
     Active Substance: AZITHROMYCIN ANHYDROUS
     Dosage: ?          OTHER STRENGTH:500 MG PER VIAL;?
     Route: 042

REACTIONS (1)
  - Product packaging confusion [None]
